FAERS Safety Report 14849844 (Version 1)
Quarter: 2018Q2

REPORT INFORMATION
  Report Type: Report from Study
  Country: US (occurrence: US)
  Receive Date: 20180504
  Receipt Date: 20180504
  Transmission Date: 20180711
  Serious: Yes (Hospitalization)
  Sender: FDA-Public Use
  Company Number: US-ACTELION-A-US2018-171537

PATIENT
  Age: 4 Year
  Sex: Female

DRUGS (11)
  1. TRACLEER [Suspect]
     Active Substance: BOSENTAN
     Indication: PULMONARY ARTERIAL HYPERTENSION
     Dosage: 15.625 MG, BID
     Route: 048
     Dates: start: 20170418
  2. PULMICORT TURBUHALER [Concomitant]
     Active Substance: BUDESONIDE
     Dosage: 0.25 MG/2ML, UNK
     Dates: start: 20141224
  3. OMEPRAZOLE. [Concomitant]
     Active Substance: OMEPRAZOLE
     Dosage: 20 MG, UNK
     Dates: start: 20141226
  4. LORAZEPAM. [Concomitant]
     Active Substance: LORAZEPAM
     Dosage: 2 MG/ML, UNK
     Dates: start: 20141226
  5. VIAGRA [Concomitant]
     Active Substance: SILDENAFIL CITRATE
     Dosage: 25 MG, UNK
     Dates: start: 20141226, end: 20180109
  6. BUMETANIDE. [Concomitant]
     Active Substance: BUMETANIDE
     Dosage: 0.5 MG, UNK
     Dates: start: 20141226
  7. REVATIO [Concomitant]
     Active Substance: SILDENAFIL CITRATE
     Dosage: 10 MG/ML, UNK
     Dates: start: 20180228, end: 20180324
  8. ALBUTEROL. [Concomitant]
     Active Substance: ALBUTEROL
     Dosage: 90 MCG, UNK
     Dates: start: 20141226
  9. POTASSIUM [Concomitant]
     Active Substance: POTASSIUM
     Dosage: 75 MG, UNK
     Dates: start: 20141226
  10. CLONIDINE. [Concomitant]
     Active Substance: CLONIDINE
     Dosage: UNK
     Dates: start: 20141226
  11. SPIRONOLACTONE. [Concomitant]
     Active Substance: SPIRONOLACTONE
     Dosage: 50 MG, UNK
     Dates: start: 20141226, end: 20180109

REACTIONS (2)
  - Hernia repair [Recovering/Resolving]
  - Infection [Recovering/Resolving]

NARRATIVE: CASE EVENT DATE: 20180406
